FAERS Safety Report 10926918 (Version 2)
Quarter: 2015Q2

REPORT INFORMATION
  Report Type: Spontaneous
  Country: US (occurrence: US)
  Receive Date: 20150318
  Receipt Date: 20150403
  Transmission Date: 20150821
  Serious: No
  Sender: FDA-Public Use
  Company Number: US-009507513-1503USA006870

PATIENT
  Age: 96 Year
  Sex: Female

DRUGS (5)
  1. OMEGA-3 MARINE TRIGLYCERIDES [Concomitant]
     Active Substance: FISH OIL
     Indication: PAIN
     Dosage: UNK, UNKNOWN
  2. MIRALAX [Suspect]
     Active Substance: POLYETHYLENE GLYCOL 3350
     Indication: CONSTIPATION
     Dosage: 17 G, QD
     Route: 048
  3. IBUPROFEN. [Concomitant]
     Active Substance: IBUPROFEN
     Indication: PAIN
     Dosage: UNK, PRN
  4. AMLODIPINE BESYLATE. [Concomitant]
     Active Substance: AMLODIPINE BESYLATE
     Indication: HYPERTENSION
     Dosage: 1 DF, QD
  5. OS-CAL (CALCIUM CARBONATE) [Concomitant]
     Indication: MINERAL SUPPLEMENTATION
     Dosage: 2 DF, QD

REACTIONS (2)
  - Incorrect drug administration duration [Unknown]
  - Diarrhoea [Unknown]

NARRATIVE: CASE EVENT DATE: 201501
